FAERS Safety Report 7332652-0 (Version None)
Quarter: 2011Q1

REPORT INFORMATION
  Report Type: 
  Country: None (occurrence: None)
  Receive Date: 20110304
  Receipt Date: 20110226
  Transmission Date: 20110831
  Serious: Yes (Other)
  Sender: FDA-Public Use
  Company Number: US-US-EMD SERONO, INC.-7037414

PATIENT
  Sex: Female

DRUGS (5)
  1. ZANAFLEX [Concomitant]
  2. VICODIN [Concomitant]
     Indication: PAIN
  3. LITHIUM [Concomitant]
     Indication: BIPOLAR DISORDER
  4. REBIF [Suspect]
     Indication: MULTIPLE SCLEROSIS
     Route: 058
     Dates: start: 20040715
  5. BACLOFEN [Concomitant]

REACTIONS (5)
  - FATIGUE [None]
  - GRAND MAL CONVULSION [None]
  - FALL [None]
  - BRONCHITIS [None]
  - MULTIPLE SCLEROSIS RELAPSE [None]
